FAERS Safety Report 8806230 (Version 1)
Quarter: 2012Q4

REPORT INFORMATION
  Report Type: Spontaneous
  Country: DK (occurrence: None)
  Receive Date: 20120918
  Receipt Date: 20120918
  Transmission Date: 20130627
  Serious: Yes (Other)
  Sender: FDA-Public Use
  Company Number: 2012MA011140

PATIENT
  Age: 37 Year
  Sex: Female

DRUGS (3)
  1. PACLITAXEL [Suspect]
     Indication: CERVICAL CANCER
     Route: 042
     Dates: start: 20120807, end: 20120807
  2. LANSOX [Concomitant]
  3. SEREUPIN [Concomitant]

REACTIONS (6)
  - Hypotension [None]
  - Presyncope [None]
  - Abdominal pain [None]
  - Retching [None]
  - Erythema [None]
  - Infusion related reaction [None]
